FAERS Safety Report 15116462 (Version 1)
Quarter: 2018Q3

REPORT INFORMATION
  Report Type: Spontaneous
  Country: FR (occurrence: FR)
  Receive Date: 20180706
  Receipt Date: 20180706
  Transmission Date: 20181010
  Serious: Yes (Other)
  Sender: FDA-Public Use
  Company Number: FR-BAUSCH-BL-2018-018503

PATIENT
  Age: 70 Year
  Sex: Male
  Weight: 79 kg

DRUGS (6)
  1. ZELITREX [Concomitant]
     Active Substance: VALACYCLOVIR HYDROCHLORIDE
     Indication: PROPHYLAXIS
     Dosage: 1 GRAM IN 1 DAY
     Route: 048
     Dates: start: 20170613
  2. REVLIMID [Suspect]
     Active Substance: LENALIDOMIDE
     Indication: PLASMA CELL MYELOMA
     Dosage: 21 DOSAGE FORM IN 28 DAYS
     Route: 048
     Dates: start: 20170613, end: 20180315
  3. ASPEGIC [Concomitant]
     Active Substance: ASPIRIN DL-LYSINE
     Indication: THROMBOSIS PROPHYLAXIS
     Dosage: 1 DOSAGE FORM IN ONE DAY
     Route: 048
     Dates: start: 20170613
  4. BACTRIM [Concomitant]
     Active Substance: SULFAMETHOXAZOLE\TRIMETHOPRIM
     Indication: PROPHYLAXIS
     Dosage: 3 DOSAGE FORMS IN ONE WEEK
     Route: 048
     Dates: start: 20170613
  5. LEDERFOLINE [Concomitant]
     Active Substance: LEUCOVORIN CALCIUM
     Indication: PROPHYLAXIS
     Dosage: ONE DOSAGE FORM IN ONE WEEK
     Route: 048
     Dates: start: 20170613
  6. DEXAMETHASONE. [Suspect]
     Active Substance: DEXAMETHASONE
     Indication: PLASMA CELL MYELOMA
     Dosage: 40 MILLIGRAM IN ONE WEEK
     Route: 048
     Dates: start: 20170613, end: 20180315

REACTIONS (1)
  - Hepatocellular injury [Recovered/Resolved]

NARRATIVE: CASE EVENT DATE: 20180315
